FAERS Safety Report 5813680-0 (Version None)
Quarter: 2008Q3

REPORT INFORMATION
  Report Type: 
  Country: None (occurrence: None)
  Receive Date: 20080717
  Receipt Date: 20080716
  Transmission Date: 20090109
  Serious: Yes (Hospitalization)
  Sender: FDA-Public Use
  Company Number: D0057598A

PATIENT
  Age: 64 Year
  Sex: Male
  Weight: 90 kg

DRUGS (5)
  1. ARIXTRA [Suspect]
     Indication: ARTHROSCOPY
     Route: 065
  2. BLOPRESS [Concomitant]
     Route: 048
  3. IBUPROFEN [Concomitant]
     Dosage: 400MG THREE TIMES PER DAY
     Route: 065
  4. PANTOPRAZOLE SODIUM [Concomitant]
     Dosage: 40MG AT NIGHT
     Route: 065
  5. EMBOLEX [Concomitant]
     Dosage: .3ML PER DAY
     Route: 065

REACTIONS (2)
  - COMPARTMENT SYNDROME [None]
  - HAEMATOMA [None]
